FAERS Safety Report 8209599-0 (Version None)
Quarter: 2012Q1

REPORT INFORMATION
  Report Type: 
  Country: None (occurrence: None)
  Receive Date: 20120314
  Receipt Date: 20120309
  Transmission Date: 20120608
  Serious: Yes (Other)
  Sender: FDA-Public Use
  Company Number: GB-PFIZER INC-2012049451

PATIENT
  Age: 75 Year
  Sex: Male

DRUGS (10)
  1. WARFARIN SODIUM [Suspect]
     Dosage: UNK
  2. RAMIPRIL [Suspect]
     Dosage: UNK
  3. CYSTEINE [Suspect]
     Dosage: UNK
  4. FORMOTEROL FUMARATE [Suspect]
     Dosage: UNK
     Route: 055
  5. ATORVASTATIN [Suspect]
     Dosage: UNK
  6. FUROSEMIDE [Suspect]
     Dosage: UNK
  7. PREDNISOLONE [Suspect]
     Dosage: UNK
  8. SALBUTAMOL [Suspect]
     Dosage: UNK
  9. VERAPAMIL HYDROCHLORIDE [Suspect]
     Dosage: UNK
  10. METFORMIN HCL [Suspect]
     Dosage: UNK

REACTIONS (1)
  - HALLUCINATION [None]
